FAERS Safety Report 22721692 (Version 2)
Quarter: 2024Q3

REPORT INFORMATION
  Report Type: Spontaneous
  Country: US (occurrence: US)
  Receive Date: 20230719
  Receipt Date: 20240723
  Transmission Date: 20241017
  Serious: Yes (Other)
  Sender: OTSUKA
  Company Number: US-OTSUKA-2023_006030

PATIENT
  Sex: Female
  Weight: 65.77 kg

DRUGS (3)
  1. REXULTI [Suspect]
     Active Substance: BREXPIPRAZOLE
     Indication: Depression
     Dosage: 0.5 MG, QD
     Route: 065
     Dates: start: 2023, end: 2023
  2. NARDIL [Concomitant]
     Active Substance: PHENELZINE SULFATE
     Indication: Depression
     Dosage: UNK
     Route: 065
  3. OLANZAPINE [Concomitant]
     Active Substance: OLANZAPINE
     Indication: Depression
     Dosage: UNK
     Route: 065

REACTIONS (4)
  - Tardive dyskinesia [Not Recovered/Not Resolved]
  - Depression [Unknown]
  - Sleep disorder [Not Recovered/Not Resolved]
  - Anxiety [Unknown]
